FAERS Safety Report 20844084 (Version 1)
Quarter: 2022Q2

REPORT INFORMATION
  Report Type: Spontaneous
  Country: US (occurrence: None)
  Receive Date: 20220517
  Receipt Date: 20220517
  Transmission Date: 20220721
  Serious: Yes (Hospitalization)
  Sender: FDA-Public Use
  Company Number: None

PATIENT
  Sex: Male

DRUGS (1)
  1. BENEFIX [Suspect]
     Active Substance: COAGULATION FACTOR IX RECOMBINANT HUMAN\ISOPROPYL ALCOHOL
     Indication: Factor IX deficiency
     Dosage: 2300 UNITS  IV? ?INFUSE 2300 UNITS (2070-2530) SLOW IV PUSH DAILY FOR THE NEXT 5 DAYS TO TRE.IT LEF
     Route: 042
     Dates: start: 202203

REACTIONS (1)
  - Intracranial haematoma [None]
